FAERS Safety Report 7384230-5 (Version None)
Quarter: 2011Q1

REPORT INFORMATION
  Report Type: 
  Country: None (occurrence: None)
  Receive Date: 20110322
  Receipt Date: 20110304
  Transmission Date: 20110831
  Serious: Yes (Hospitalization)
  Sender: FDA-Public Use
  Company Number: JPI-P-014116

PATIENT
  Age: 61 Year
  Sex: Male
  Weight: 92.9874 kg

DRUGS (12)
  1. HYDROCHLOROTHIAZIDE [Concomitant]
  2. SIMVASTATIN [Concomitant]
  3. XYREM [Suspect]
     Indication: CATAPLEXY
     Dosage: 5, 2.5  GM (2.5 GM, 2 IN 1 D), ORAL
     Route: 048
     Dates: start: 20110107
  4. XYREM [Suspect]
     Indication: CATAPLEXY
     Dosage: 5, 2.5  GM (2.5 GM, 2 IN 1 D), ORAL
     Route: 048
     Dates: start: 20090422
  5. METHADONE HCL [Suspect]
     Indication: BACK PAIN
     Dosage: 60 MG (20 MG, 1 IN 8 HR), ORAL
     Route: 048
     Dates: start: 20070101
  6. DIVALPROEX SODIUM [Concomitant]
  7. ARMODAFINIL [Concomitant]
  8. TELMISARTAN [Concomitant]
  9. COMPOUNDED THYROID [Concomitant]
  10. DULOXETIME HYDROCHLORIDE [Concomitant]
  11. HYDROCORTISONE [Concomitant]
  12. FINASTERIDE [Concomitant]

REACTIONS (7)
  - MUSCLE TWITCHING [None]
  - SOMNOLENCE [None]
  - PULMONARY THROMBOSIS [None]
  - DRUG DOSE OMISSION [None]
  - CORONARY ARTERY DISEASE [None]
  - DYSKINESIA [None]
  - SLEEP APNOEA SYNDROME [None]
